FAERS Safety Report 8933815 (Version 1)
Quarter: 2012Q4

REPORT INFORMATION
  Report Type: 
  Country: IL (occurrence: IL)
  Receive Date: 20121129
  Receipt Date: 20121129
  Transmission Date: 20130627
  Serious: Yes (Other)
  Sender: FDA-Public Use
  Company Number: IL-ELI_LILLY_AND_COMPANY-IL201211006104

PATIENT
  Sex: Male
  Weight: 95 kg

DRUGS (5)
  1. CYMBALTA [Suspect]
     Indication: DEPRESSION
     Dosage: 30 mg, bid
     Dates: start: 20110825
  2. RISPERDAL CONSTA [Concomitant]
     Dosage: once in two weeks
  3. CLONEX [Concomitant]
     Dosage: 20 mg, qd
  4. LOSEC [Concomitant]
     Dosage: 20 mg, qd
  5. VIAGRA [Concomitant]
     Dosage: 50 mg, UNK

REACTIONS (2)
  - Neoplasm malignant [Unknown]
  - Leukopenia [Not Recovered/Not Resolved]
